FAERS Safety Report 24459462 (Version 1)
Quarter: 2024Q4

REPORT INFORMATION
  Report Type: Report from Study
  Country: US (occurrence: US)
  Receive Date: 20241018
  Receipt Date: 20241018
  Transmission Date: 20250115
  Serious: No
  Sender: ROCHE
  Company Number: US-ROCHE-3548462

PATIENT
  Age: 57 Year
  Sex: Male
  Weight: 73.48 kg

DRUGS (13)
  1. RITUXAN [Suspect]
     Active Substance: RITUXIMAB
     Indication: Polyarthritis
     Dosage: ANTICIPATED DATE OF TREATMENT REPORTED ON 30/APR/2024
     Route: 065
  2. RITUXAN [Suspect]
     Active Substance: RITUXIMAB
     Indication: Myositis
  3. RITUXAN [Suspect]
     Active Substance: RITUXIMAB
     Indication: Idiopathic interstitial pneumonia
  4. VALACYCLOVIR [Concomitant]
     Active Substance: VALACYCLOVIR HYDROCHLORIDE
  5. PREDNISONE [Concomitant]
     Active Substance: PREDNISONE
  6. CALCIUM [Concomitant]
     Active Substance: CALCIUM
  7. LANSOPRAZOLE [Concomitant]
     Active Substance: LANSOPRAZOLE
  8. JARDIANCE [Concomitant]
     Active Substance: EMPAGLIFLOZIN
  9. FAMOTIDINE [Concomitant]
     Active Substance: FAMOTIDINE
  10. ELIQUIS [Concomitant]
     Active Substance: APIXABAN
  11. DAPSONE [Concomitant]
     Active Substance: DAPSONE
  12. ALBUTEROL SULFATE [Concomitant]
     Active Substance: ALBUTEROL SULFATE
  13. OFEV [Concomitant]
     Active Substance: NINTEDANIB

REACTIONS (2)
  - Off label use [Unknown]
  - No adverse event [Unknown]
